FAERS Safety Report 25979837 (Version 1)
Quarter: 2025Q4

REPORT INFORMATION
  Report Type: Spontaneous
  Country: US (occurrence: US)
  Receive Date: 20251030
  Receipt Date: 20251030
  Transmission Date: 20260118
  Serious: No
  Sender: PFIZER
  Company Number: US-PFIZER INC-PV202400070478

PATIENT
  Age: 30 Year
  Sex: Female

DRUGS (3)
  1. LORBRENA [Suspect]
     Active Substance: LORLATINIB
     Indication: Lung neoplasm malignant
     Dosage: 100 MG
     Route: 048
  2. LORBRENA [Suspect]
     Active Substance: LORLATINIB
     Dosage: 75 MG, 1X/DAY (TAKE 3 TABLETS OF 25 MG, ONCE A DAY)
     Route: 048
  3. LORBRENA [Suspect]
     Active Substance: LORLATINIB
     Dosage: 25 MG (25 MG TABLETS)

REACTIONS (1)
  - Pain [Unknown]
